FAERS Safety Report 6436385-4 (Version None)
Quarter: 2009Q4

REPORT INFORMATION
  Report Type: 
  Country: None (occurrence: None)
  Receive Date: 20091111
  Receipt Date: 20091106
  Transmission Date: 20100525
  Serious: Yes (Life-Threatening, Hospitalization, Disabling)
  Sender: FDA-Public Use
  Company Number: PHEH2009US11128

PATIENT
  Sex: Female
  Weight: 97.506 kg

DRUGS (11)
  1. RECLAST [Suspect]
     Indication: OSTEOPOROSIS
     Dosage: 5 MG ONCE YEARLY
     Dates: start: 20090716, end: 20090716
  2. IBUPROFEN [Suspect]
     Indication: PAIN
  3. ATENOLOL [Concomitant]
     Indication: HYPERTENSION
     Dosage: 50 MG, BID
  4. AMLODIPINE [Concomitant]
     Indication: HYPERTENSION
     Dosage: 5 MG, QD
  5. SPIRONOLACTONE [Concomitant]
     Indication: HYPERTENSION
     Dosage: 25 MG, QD
  6. CALTRATE +D [Concomitant]
     Indication: OSTEOPOROSIS
     Dosage: 1 DF BID
     Route: 048
  7. MICRO-K [Concomitant]
     Indication: HYPOKALAEMIA
     Dosage: 10 MEQ BID
     Route: 048
  8. FERROUS SULFATE TAB [Concomitant]
     Indication: ANAEMIA
     Dosage: UNK
  9. BENAZEPRIL HYDROCHLORIDE [Concomitant]
     Indication: HYPERTENSION
     Dosage: 30 MG DAILY
     Route: 048
  10. COLCHICINE [Concomitant]
     Indication: GOUT
     Dosage: 0.6 MG DAILY
     Route: 048
  11. ALLOPURINOL [Concomitant]
     Indication: GOUT
     Dosage: 100 MG DAILY
     Route: 048

REACTIONS (4)
  - BACK PAIN [None]
  - BONE PAIN [None]
  - GASTROINTESTINAL HAEMORRHAGE [None]
  - PAIN IN EXTREMITY [None]
